FAERS Safety Report 5941779-7 (Version None)
Quarter: 2008Q4

REPORT INFORMATION
  Report Type: 
  Country: None (occurrence: None)
  Receive Date: 20081105
  Receipt Date: 20081028
  Transmission Date: 20090506
  Serious: Yes (Other)
  Sender: FDA-Public Use
  Company Number: PHHY2008BR26769

PATIENT
  Sex: Female
  Weight: 68 kg

DRUGS (4)
  1. VOLTAREN [Suspect]
  2. PREXIGE [Suspect]
     Dosage: 400 MG, UNK
     Route: 048
  3. COLTRAX [Concomitant]
     Route: 030
  4. TRAMADOL HCL [Concomitant]

REACTIONS (2)
  - CHEST PAIN [None]
  - PULMONARY EMBOLISM [None]
